FAERS Safety Report 8058911-4 (Version None)
Quarter: 2012Q1

REPORT INFORMATION
  Report Type: 
  Country: None (occurrence: None)
  Receive Date: 20120120
  Receipt Date: 20111007
  Transmission Date: 20120608
  Serious: Yes (Life-Threatening)
  Sender: FDA-Public Use
  Company Number: US-BRISTOL-MYERS SQUIBB COMPANY-16120263

PATIENT
  Age: 38 Year

DRUGS (1)
  1. YERVOY [Suspect]
     Indication: METASTATIC MALIGNANT MELANOMA
     Dosage: INFUSION,DOSES-4
     Dates: start: 20110501, end: 20110705

REACTIONS (1)
  - NEOPLASM MALIGNANT [None]
